FAERS Safety Report 20022361 (Version 2)
Quarter: 2021Q4

REPORT INFORMATION
  Report Type: Spontaneous
  Country: JP (occurrence: JP)
  Receive Date: 20211102
  Receipt Date: 20211230
  Transmission Date: 20220303
  Serious: Yes (Other)
  Sender: FDA-Public Use
  Company Number: JP-TAKEDA-2021TJP112421

PATIENT
  Age: 58 Year
  Sex: Male
  Weight: 70 kg

DRUGS (5)
  1. ENTYVIO [Suspect]
     Active Substance: VEDOLIZUMAB
     Indication: Colitis ulcerative
     Dosage: 300 MILLIGRAM
     Route: 041
     Dates: start: 20210826, end: 20210826
  2. MODERNA COVID-19 VACCINE [Suspect]
     Active Substance: ELASOMERAN
     Indication: Product used for unknown indication
     Dosage: UNK
     Route: 065
     Dates: start: 20210819, end: 20210819
  3. MODERNA COVID-19 VACCINE [Suspect]
     Active Substance: ELASOMERAN
     Dosage: UNK
     Route: 065
     Dates: start: 20210916, end: 20210916
  4. IMURAN [Suspect]
     Active Substance: AZATHIOPRINE
     Indication: Colitis ulcerative
     Dosage: 50 MILLIGRAM
     Route: 048
     Dates: start: 20210729
  5. IMURAN [Suspect]
     Active Substance: AZATHIOPRINE
     Dosage: 100 MILLIGRAM
     Route: 048
     Dates: end: 20210901

REACTIONS (1)
  - Cholangitis [Recovered/Resolved]

NARRATIVE: CASE EVENT DATE: 20210820
